FAERS Safety Report 7256664-0 (Version None)
Quarter: 2011Q1

REPORT INFORMATION
  Report Type: 
  Country: None (occurrence: None)
  Receive Date: 20110129
  Receipt Date: 20100810
  Transmission Date: 20110831
  Serious: No
  Sender: FDA-Public Use
  Company Number: US-ABBOTT-10P-163-0663091-00

PATIENT
  Age: 61 Year
  Sex: Female

DRUGS (4)
  1. CALCIUM [Concomitant]
     Indication: PRODUCT USED FOR UNKNOWN INDICATION
  2. HUMIRA [Suspect]
     Indication: PSORIASIS
     Dosage: TOOK 2 DOSES ONLY
     Dates: start: 20100615, end: 20100622
  3. MULTI-VITAMINS [Concomitant]
     Indication: PRODUCT USED FOR UNKNOWN INDICATION
  4. VIT D [Concomitant]
     Indication: PRODUCT USED FOR UNKNOWN INDICATION

REACTIONS (5)
  - INJECTION SITE WARMTH [None]
  - INJECTION SITE SWELLING [None]
  - RASH [None]
  - RASH PAPULAR [None]
  - INJECTION SITE ERYTHEMA [None]
